FAERS Safety Report 22081773 (Version 5)
Quarter: 2023Q2

REPORT INFORMATION
  Report Type: Report from Study
  Country: TW (occurrence: None)
  Receive Date: 20230310
  Receipt Date: 20230411
  Transmission Date: 20230721
  Serious: Yes (Hospitalization)
  Sender: FDA-Public Use
  Company Number: TW-ROCHE-3302799

PATIENT
  Age: 64 Year
  Sex: Male
  Weight: 74.4 kg

DRUGS (15)
  1. ENTRECTINIB [Suspect]
     Active Substance: ENTRECTINIB
     Indication: Colorectal cancer metastatic
     Dosage: START DATE OF MOST RECENT DOSE OF STUDY DRUG PRIOR TO AE AND SAE OF ILEUS AND PANCREATITIS IS 03/MAR
     Route: 048
     Dates: start: 20230113
  2. DICLOFENAC [Concomitant]
     Active Substance: DICLOFENAC
     Indication: COVID-19
     Route: 048
     Dates: start: 20230215, end: 20230218
  3. PSEUDOEPHEDRINE\TRIPROLIDINE [Concomitant]
     Active Substance: PSEUDOEPHEDRINE\TRIPROLIDINE
     Indication: COVID-19
     Route: 048
     Dates: start: 20230215, end: 20230218
  4. PSEUDOEPHEDRINE\TRIPROLIDINE [Concomitant]
     Active Substance: PSEUDOEPHEDRINE\TRIPROLIDINE
     Route: 048
     Dates: start: 20230220, end: 20230222
  5. OXETHAZAINE [Concomitant]
     Active Substance: OXETHAZAINE
     Indication: COVID-19
     Route: 048
     Dates: start: 20230215, end: 20230218
  6. OXETHAZAINE [Concomitant]
     Active Substance: OXETHAZAINE
     Route: 048
     Dates: start: 20230220, end: 20230222
  7. DIMETHYLPOLYSILOXANE [Concomitant]
     Indication: COVID-19
     Route: 048
     Dates: start: 20230215, end: 20230218
  8. ACETAMINOPHEN [Concomitant]
     Active Substance: ACETAMINOPHEN
     Indication: COVID-19
     Route: 048
     Dates: start: 20230215, end: 20230218
  9. DEXTROMETHORPHAN [Concomitant]
     Active Substance: DEXTROMETHORPHAN
     Indication: COVID-19
     Route: 048
     Dates: start: 20230220, end: 20230222
  10. PANTOPRAZOLE [Concomitant]
     Active Substance: PANTOPRAZOLE
     Indication: Gastritis
     Route: 042
     Dates: start: 20230304, end: 20230304
  11. PANTOPRAZOLE [Concomitant]
     Active Substance: PANTOPRAZOLE
     Route: 042
     Dates: start: 20230305, end: 20230307
  12. BUTYLSCOPOLAMINE BROMIDE [Concomitant]
     Active Substance: BUTYLSCOPOLAMINE BROMIDE
     Indication: Panendoscopy
     Route: 030
     Dates: start: 20230305, end: 20230305
  13. TAMSULOSIN [Concomitant]
     Active Substance: TAMSULOSIN
     Indication: Benign prostatic hyperplasia
     Dosage: START DATE: 07/MAR/2023, END DATE: 08/MAR/2023
     Route: 048
     Dates: start: 20230307, end: 20230308
  14. LANSOPRAZOLE [Concomitant]
     Active Substance: LANSOPRAZOLE
     Indication: Gastritis
     Route: 048
     Dates: start: 20230308
  15. LORAZEPAM [Concomitant]
     Active Substance: LORAZEPAM
     Indication: Insomnia
     Route: 061
     Dates: start: 20230313

REACTIONS (2)
  - Pancreatitis [Recovered/Resolved]
  - Ileus [Recovered/Resolved]

NARRATIVE: CASE EVENT DATE: 20230304
